FAERS Safety Report 8139473-X (Version None)
Quarter: 2012Q1

REPORT INFORMATION
  Report Type: 
  Country: None (occurrence: None)
  Receive Date: 20120215
  Receipt Date: 20120209
  Transmission Date: 20120608
  Serious: Yes (Other)
  Sender: FDA-Public Use
  Company Number: US-TEVA-321798USA

PATIENT
  Sex: Female
  Weight: 108.05 kg

DRUGS (4)
  1. CITALOPRAM HYDROBROMIDE [Concomitant]
  2. ATENOLOL [Concomitant]
  3. OXYBUTYNIN [Concomitant]
  4. COPAXONE [Suspect]
     Indication: MULTIPLE SCLEROSIS
     Route: 058
     Dates: start: 20101101

REACTIONS (1)
  - BREAST CANCER [None]
